FAERS Safety Report 7534652-4 (Version None)
Quarter: 2011Q2

REPORT INFORMATION
  Report Type: 
  Country: None (occurrence: None)
  Receive Date: 20110609
  Receipt Date: 20110330
  Transmission Date: 20111010
  Serious: Yes (Disabling, Other)
  Sender: FDA-Public Use
  Company Number: PHHY2009JP14969

PATIENT
  Sex: Female
  Weight: 54 kg

DRUGS (28)
  1. VESTURIT [Concomitant]
     Dosage: 200 MG, UNK
     Route: 048
     Dates: start: 20061112, end: 20080306
  2. MAGNESIUM OXIDE [Concomitant]
     Dosage: 2 G, UNK
     Route: 048
     Dates: start: 20080901
  3. VALSARTAN [Suspect]
     Dosage: 40 MG, UNK
     Route: 048
     Dates: start: 20071221, end: 20080108
  4. NORVASC [Concomitant]
     Indication: HYPERTENSION
     Dosage: 2.5 MG, UNK
     Route: 048
     Dates: start: 20080528
  5. ALPRAZOLAM [Concomitant]
     Dosage: 0.4 MG, UNK
     Route: 048
     Dates: start: 20060805
  6. LIPITOR [Concomitant]
     Dosage: 5 MG, UNK
     Route: 048
     Dates: start: 20080901, end: 20080908
  7. VALSARTAN [Suspect]
     Dosage: 40 MG, UNK
     Route: 048
     Dates: start: 20080206, end: 20080527
  8. AMARYL [Concomitant]
     Dosage: 0.5 MG, UNK
     Route: 048
     Dates: start: 20061111, end: 20081121
  9. LIVALO [Concomitant]
     Dosage: 1 MG, UNK
     Route: 048
     Dates: start: 20080822, end: 20080830
  10. MAGNESIUM OXIDE [Concomitant]
     Dosage: 1.5 G, UNK
     Route: 048
     Dates: end: 20081121
  11. PROMAC [Concomitant]
     Dosage: 150 MG, UNK
     Route: 048
     Dates: start: 20081217
  12. VALSARTAN [Suspect]
     Dosage: 80 MG, UNK
     Route: 048
     Dates: start: 20080528, end: 20090303
  13. NORVASC [Concomitant]
     Dosage: 7.5 MG, UNK
     Route: 048
  14. VALSARTAN [Suspect]
     Dosage: 20 MG, UNK
     Route: 048
     Dates: start: 20080109, end: 20080205
  15. ULCERLMIN [Concomitant]
     Dosage: 2 G, UNK
     Route: 048
     Dates: start: 20050204
  16. WARFARIN SODIUM [Concomitant]
     Dosage: 2.75 MG, UNK
     Route: 048
  17. WARFARIN SODIUM [Concomitant]
     Dosage: 3 MG, UNK
     Route: 048
  18. LASIX [Concomitant]
     Indication: HYPERTENSION
     Dosage: 20 MG, UNK
     Route: 048
     Dates: start: 20030122
  19. NORVASC [Concomitant]
     Dosage: 5 MG, UNK
     Route: 048
  20. FLUNASE [Concomitant]
     Dates: start: 20020607
  21. EPADEL [Concomitant]
     Dosage: 600 MG, UNK
     Route: 048
     Dates: start: 20080822, end: 20080830
  22. SENNOSIDE [Concomitant]
     Dosage: 12 MG, UNK
     Route: 048
     Dates: start: 20080909
  23. WARFARIN SODIUM [Concomitant]
     Dosage: 2.5 MG, UNK
     Route: 048
  24. LOCHOLEST [Concomitant]
     Dosage: 30 MG, UNK
     Route: 048
     Dates: start: 20081217
  25. VALSARTAN [Suspect]
     Indication: HYPERTENSION
     Dosage: 20 MG, UNK
     Route: 048
     Dates: start: 20071107, end: 20071220
  26. TICLOPIDINE HCL [Concomitant]
     Dosage: 200 MG, UNK
     Route: 048
     Dates: start: 20051210, end: 20081121
  27. ASPIRIN [Concomitant]
     Dosage: 200 MG, UNK
     Route: 048
     Dates: start: 20040720
  28. WARFARIN SODIUM [Concomitant]
     Dosage: 2 MG, UNK
     Route: 048
     Dates: start: 20081122

REACTIONS (6)
  - ATRIAL FIBRILLATION [None]
  - LOSS OF CONSCIOUSNESS [None]
  - CEREBRAL INFARCTION [None]
  - CONSTIPATION [None]
  - DRUG INEFFECTIVE [None]
  - EMBOLISM [None]
